FAERS Safety Report 9981281 (Version 6)
Quarter: 2014Q3

REPORT INFORMATION
  Report Type: Report from Study
  Country: DE (occurrence: DE)
  Receive Date: 20140307
  Receipt Date: 20140911
  Transmission Date: 20150326
  Serious: Yes (Other)
  Sender: FDA-Public Use
  Company Number: DE-BEH-2014039843

PATIENT
  Age: 49 Year
  Sex: Male
  Weight: 67 kg

DRUGS (16)
  1. HIZENTRA [Suspect]
     Active Substance: HUMAN IMMUNOGLOBULIN G
     Dosage: APPLICATION FROM MAY-2012 TO DEC-2013, INFUSION RATE 1 ML/MIN
     Route: 058
  2. HIZENTRA [Suspect]
     Active Substance: HUMAN IMMUNOGLOBULIN G
     Dosage: 4 INJECTION SITES (2 PER THIGH)
     Route: 058
     Dates: start: 20120510, end: 20120510
  3. HIZENTRA [Suspect]
     Active Substance: HUMAN IMMUNOGLOBULIN G
     Dosage: 4 INJECTION SITES (2 PER THIGH)
     Route: 058
     Dates: start: 20130616, end: 20130616
  4. HIZENTRA [Suspect]
     Active Substance: HUMAN IMMUNOGLOBULIN G
     Dosage: 4 INJECTION SITES (2 PER THIGH)
     Route: 058
     Dates: start: 20130726, end: 20130726
  5. HIZENTRA [Suspect]
     Active Substance: HUMAN IMMUNOGLOBULIN G
     Dosage: 4 INJECTION SITES (2 PER THIGH)
     Route: 058
     Dates: start: 20130824, end: 20130824
  6. AZITHROMYCIN [Concomitant]
     Active Substance: AZITHROMYCIN ANHYDROUS
     Indication: PROPHYLAXIS
     Dosage: START DATE JAN-2012
     Route: 048
  7. HIZENTRA [Suspect]
     Active Substance: HUMAN IMMUNOGLOBULIN G
     Indication: IMMUNODEFICIENCY COMMON VARIABLE
     Dosage: 4 INJECTION SITES (2 PER THIGH)
     Route: 058
     Dates: start: 20120425, end: 20120425
  8. HIZENTRA [Suspect]
     Active Substance: HUMAN IMMUNOGLOBULIN G
     Dosage: 4 INJECTION SITES (2 PER THIGH)
     Route: 058
     Dates: start: 20130624, end: 20130624
  9. HIZENTRA [Suspect]
     Active Substance: HUMAN IMMUNOGLOBULIN G
     Dosage: 4 INJECTION SITES (2 PER THIGH)
     Route: 058
     Dates: start: 20120517, end: 20120517
  10. HIZENTRA [Suspect]
     Active Substance: HUMAN IMMUNOGLOBULIN G
     Indication: BLOOD IMMUNOGLOBULIN G DECREASED
     Dosage: 4 INJECTION SITES (2 PER THIGH)
     Route: 058
     Dates: start: 20120417, end: 20120417
  11. HIZENTRA [Suspect]
     Active Substance: HUMAN IMMUNOGLOBULIN G
     Dosage: 4 INJECTION SITES (2 PER THIGH)
     Route: 058
     Dates: start: 20130801, end: 20130801
  12. HIZENTRA [Suspect]
     Active Substance: HUMAN IMMUNOGLOBULIN G
     Dosage: 4 INJECTION SITES (2 PER THIGH)
     Route: 058
     Dates: start: 20130606, end: 20130606
  13. HIZENTRA [Suspect]
     Active Substance: HUMAN IMMUNOGLOBULIN G
     Dosage: 4 INJECTION SITES (2 PER THIGH)
     Route: 058
     Dates: start: 20130809, end: 20130809
  14. HIZENTRA [Suspect]
     Active Substance: HUMAN IMMUNOGLOBULIN G
     Dosage: 4 INJECTION SITES (2 PER THIGH)
     Route: 058
     Dates: start: 20120503, end: 20120503
  15. HIZENTRA [Suspect]
     Active Substance: HUMAN IMMUNOGLOBULIN G
     Dosage: 4 INJECTION SITES (2 PER THIGH)
     Route: 058
     Dates: start: 20130529, end: 20130529
  16. MUCOCLEAR [Concomitant]
     Indication: PROPHYLAXIS
     Dosage: START DATE 05-MAY-2012; INHALATIVE

REACTIONS (13)
  - Infusion site scar [Recovered/Resolved]
  - Wound [Recovered/Resolved]
  - Scar [Recovered/Resolved with Sequelae]
  - Blister [Recovered/Resolved with Sequelae]
  - Wound [Recovered/Resolved]
  - Rash pustular [Recovered/Resolved with Sequelae]
  - Skin exfoliation [Recovered/Resolved]
  - Injection site atrophy [Recovered/Resolved]
  - Blister [Recovered/Resolved]
  - Wound [Recovered/Resolved]
  - Papule [Recovered/Resolved with Sequelae]
  - Skin ulcer [Recovered/Resolved with Sequelae]
  - Secretion discharge [Recovered/Resolved with Sequelae]

NARRATIVE: CASE EVENT DATE: 201205
